FAERS Safety Report 9551804 (Version 1)
Quarter: 2013Q3

REPORT INFORMATION
  Report Type: Spontaneous
  Country: US (occurrence: None)
  Receive Date: 20130923
  Receipt Date: 20130923
  Transmission Date: 20140515
  Serious: Yes (Other)
  Sender: FDA-Public Use
  Company Number: None

PATIENT
  Age: 17 Year
  Sex: Male
  Weight: 70.2 kg

DRUGS (1)
  1. MINOCYCLINE [Suspect]
     Dates: start: 20121201, end: 20130816

REACTIONS (10)
  - Malaise [None]
  - Back pain [None]
  - Headache [None]
  - Feeling of body temperature change [None]
  - Hyperhidrosis [None]
  - Abdominal pain [None]
  - Malaise [None]
  - Arthralgia [None]
  - Arthralgia [None]
  - Chromaturia [None]
